FAERS Safety Report 22797303 (Version 2)
Quarter: 2024Q3

REPORT INFORMATION
  Report Type: Spontaneous
  Country: JP (occurrence: JP)
  Receive Date: 20230808
  Receipt Date: 20240827
  Transmission Date: 20241017
  Serious: Yes (Life-Threatening, Hospitalization, Other)
  Sender: ROCHE
  Company Number: JP-CHUGAI-2023011477AA

PATIENT
  Age: 65 Year
  Sex: Male
  Weight: 57.4 kg

DRUGS (1)
  1. ROZLYTREK [Suspect]
     Active Substance: ENTRECTINIB
     Indication: Lung adenocarcinoma
     Dosage: 600 MILLIGRAM, QD
     Route: 048
     Dates: start: 20230216, end: 20230306

REACTIONS (2)
  - Left ventricular dysfunction [Recovering/Resolving]
  - Cardiac failure acute [Unknown]

NARRATIVE: CASE EVENT DATE: 20230307
